FAERS Safety Report 10016727 (Version 1)
Quarter: 2014Q1

REPORT INFORMATION
  Report Type: Report from Study
  Country: MX (occurrence: MX)
  Receive Date: 20140318
  Receipt Date: 20140318
  Transmission Date: 20141002
  Serious: Yes (Other)
  Sender: FDA-Public Use
  Company Number: PHHY2014MX031492

PATIENT
  Age: 23 Year
  Sex: Female

DRUGS (3)
  1. TEGRETOL-XR [Suspect]
     Indication: EPILEPSY
     Dosage: 2 DF, DAILY
     Route: 048
     Dates: start: 199601, end: 201309
  2. CARBAMAZEPINE [Suspect]
     Dosage: 2 UKN, DAILY
  3. CLONAZEPAM [Concomitant]
     Indication: INSOMNIA
     Dosage: 1 UKN, DAILY
     Dates: start: 199601

REACTIONS (5)
  - Aggression [Unknown]
  - Growth retardation [Unknown]
  - Insomnia [Unknown]
  - Gastritis [Unknown]
  - Drug ineffective [Unknown]
